FAERS Safety Report 6048751-X (Version None)
Quarter: 2009Q1

REPORT INFORMATION
  Report Type: 
  Country: None (occurrence: None)
  Receive Date: 20090123
  Receipt Date: 20090116
  Transmission Date: 20090719
  Serious: Yes (Other)
  Sender: FDA-Public Use
  Company Number: SE-ASTRAZENECA-2009SE00391

PATIENT
  Age: 40 Year
  Sex: Male

DRUGS (1)
  1. NEXIUM [Suspect]
     Dosage: 40 MG START DATE } 2MONTHS AGO, DOSE REDUCED TO 20 MG.

REACTIONS (3)
  - CHEST PAIN [None]
  - PALPITATIONS [None]
  - PARAESTHESIA [None]
